FAERS Safety Report 10257812 (Version 1)
Quarter: 2014Q2

REPORT INFORMATION
  Report Type: Spontaneous
  Country: TR (occurrence: None)
  Receive Date: 20140620
  Receipt Date: 20140620
  Transmission Date: 20141212
  Serious: Yes (Hospitalization, Other)
  Sender: FDA-Public Use
  Company Number: SYM-2014-22321

PATIENT
  Sex: 0

DRUGS (3)
  1. NIFEDIPINE (NIFEDIPINE) (NIFEDIPINE) [Suspect]
     Indication: TOCOLYSIS
     Dosage: 1 IN 4 HR
     Route: 064
  2. AMOXICILLIN (AMOXICILLIN) [Suspect]
     Dosage: 1 IN 6 HR
     Route: 064
  3. BETAMETHASONE [Suspect]
     Route: 064

REACTIONS (5)
  - Acute respiratory failure [None]
  - Pulmonary oedema [None]
  - Bradycardia foetal [None]
  - Caesarean section [None]
  - Maternal drugs affecting foetus [None]
